FAERS Safety Report 16144607 (Version 1)
Quarter: 2019Q2

REPORT INFORMATION
  Report Type: Spontaneous
  Country: GB (occurrence: GB)
  Receive Date: 20190402
  Receipt Date: 20190402
  Transmission Date: 20190711
  Serious: Yes (Other)
  Sender: FDA-Public Use
  Company Number: GB-009507513-1903GBR012288

PATIENT
  Sex: Female

DRUGS (1)
  1. IMPLANON [Suspect]
     Active Substance: ETONOGESTREL
     Indication: CONTRACEPTION
     Dosage: 1 IMPLANT

REACTIONS (6)
  - Abortion [Recovered/Resolved]
  - Unintended pregnancy [Recovered/Resolved]
  - Feeling abnormal [Unknown]
  - Pregnancy with implant contraceptive [Recovered/Resolved]
  - Wrong technique in product usage process [Unknown]
  - Nightmare [Unknown]
